FAERS Safety Report 4648309-0 (Version None)
Quarter: 2005Q2

REPORT INFORMATION
  Report Type: 
  Country: None (occurrence: None)
  Receive Date: 20050426
  Receipt Date: 20050415
  Transmission Date: 20051028
  Serious: Yes (Hospitalization)
  Sender: FDA-Public Use
  Company Number: 2005UW05928

PATIENT
  Age: 57 Year
  Sex: Male

DRUGS (6)
  1. TOPROL-XL [Suspect]
     Indication: ATRIAL FIBRILLATION
     Dates: start: 20041201
  2. COUMADIN [Concomitant]
  3. LOVASTATIN [Concomitant]
  4. HYDROCHLOROTHIAZIDE [Concomitant]
  5. COZAAR [Concomitant]
  6. DILANTIN [Concomitant]

REACTIONS (1)
  - GRAND MAL CONVULSION [None]
